FAERS Safety Report 4781262-8 (Version None)
Quarter: 2005Q3

REPORT INFORMATION
  Report Type: 
  Country: None (occurrence: None)
  Receive Date: 20050928
  Receipt Date: 20050824
  Transmission Date: 20060218
  Serious: Yes (Life-Threatening, Hospitalization)
  Sender: FDA-Public Use
  Company Number: BE-GLAXOSMITHKLINE-B0391701A

PATIENT
  Age: 39 Year
  Sex: Male
  Weight: 65 kg

DRUGS (8)
  1. GW873140 [Suspect]
     Indication: HIV INFECTION
     Dosage: 800MG TWICE PER DAY
     Route: 048
     Dates: start: 20050621
  2. COMBIVIR [Suspect]
     Indication: HIV INFECTION
     Dosage: 1TAB TWICE PER DAY
     Route: 048
     Dates: start: 20050621
  3. UNSPECIFIED MEDICATION [Concomitant]
     Dates: start: 20050324
  4. PARACETAMOL [Concomitant]
     Dates: start: 20050324
  5. MYOLASTAN [Concomitant]
     Dosage: 1CAP PER DAY
     Dates: start: 20050428
  6. APRANAX [Concomitant]
     Dosage: 150MG TWICE PER DAY
     Dates: start: 20050428, end: 20050530
  7. TETRAZEPAM [Concomitant]
     Dosage: 50MG PER DAY
     Dates: start: 20050503, end: 20050530
  8. DAFALGAN [Concomitant]
     Dates: start: 20050428

REACTIONS (7)
  - ALANINE AMINOTRANSFERASE INCREASED [None]
  - ASPARTATE AMINOTRANSFERASE INCREASED [None]
  - ASTHENIA [None]
  - BLOOD BILIRUBIN INCREASED [None]
  - BLOOD LACTATE DEHYDROGENASE INCREASED [None]
  - CYTOLYTIC HEPATITIS [None]
  - NAUSEA [None]
